FAERS Safety Report 6612317-0 (Version None)
Quarter: 2010Q1

REPORT INFORMATION
  Report Type: 
  Country: None (occurrence: None)
  Receive Date: 20100303
  Receipt Date: 20100222
  Transmission Date: 20100710
  Serious: Yes (Hospitalization)
  Sender: FDA-Public Use
  Company Number: US-SANOFI-AVENTIS-2010SA010599

PATIENT
  Age: 55 Year
  Sex: Female

DRUGS (5)
  1. LANTUS [Suspect]
     Dosage: DOSE:40 UNIT(S)
     Route: 058
  2. OPTICLICK [Suspect]
  3. COREG [Concomitant]
  4. LISINOPRIL [Concomitant]
  5. REGLAN [Concomitant]

REACTIONS (1)
  - PANCREATIC CYST [None]
